FAERS Safety Report 5487264-0 (Version None)
Quarter: 2007Q4

REPORT INFORMATION
  Report Type: 
  Country: None (occurrence: None)
  Receive Date: 20071015
  Receipt Date: 20070928
  Transmission Date: 20080405
  Serious: Yes (Other)
  Sender: FDA-Public Use
  Company Number: 8017125

PATIENT
  Age: 34 Year
  Sex: Male
  Weight: 82.5 kg

DRUGS (4)
  1. DIPENTUM [Suspect]
     Indication: COLITIS ULCERATIVE
     Dosage: 500 MG 2/D PO
     Route: 048
     Dates: start: 19960412
  2. CANASA [Concomitant]
  3. CORTENEMA [Concomitant]
  4. ROWASA [Concomitant]

REACTIONS (4)
  - HEPATIC ENZYME INCREASED [None]
  - HEPATIC STEATOSIS [None]
  - IATROGENIC INJURY [None]
  - PANCREATITIS [None]
